FAERS Safety Report 12705091 (Version 1)
Quarter: 2016Q3

REPORT INFORMATION
  Report Type: Spontaneous
  Country: US (occurrence: None)
  Receive Date: 20160831
  Receipt Date: 20160831
  Transmission Date: 20161109
  Serious: No
  Sender: FDA-Public Use
  Company Number: None

PATIENT
  Age: 69 Year
  Sex: Female
  Weight: 64.41 kg

DRUGS (2)
  1. ERY-TAB [Suspect]
     Active Substance: ERYTHROMYCIN
     Indication: ENDODONTIC PROCEDURE
     Route: 048
     Dates: start: 20160822, end: 20160829
  2. ADVIL ALLERGY AND CONGESTION RELIEF [Concomitant]
     Active Substance: CHLORPHENIRAMINE MALEATE\IBUPROFEN\PHENYLEPHRINE HYDROCHLORIDE

REACTIONS (7)
  - Back pain [None]
  - Diarrhoea [None]
  - Rash pruritic [None]
  - Urticaria [None]
  - Nausea [None]
  - Gastrointestinal pain [None]
  - Cold sweat [None]

NARRATIVE: CASE EVENT DATE: 20160829
